FAERS Safety Report 9048131 (Version 2)
Quarter: 2013Q2

REPORT INFORMATION
  Report Type: Spontaneous
  Country: US (occurrence: US)
  Receive Date: 20130204
  Receipt Date: 20130604
  Transmission Date: 20140414
  Serious: Yes (Other)
  Sender: FDA-Public Use
  Company Number: US-AMGEN-USASP2013002606

PATIENT
  Age: 56 Year
  Sex: Female
  Weight: 117.9 kg

DRUGS (12)
  1. ENBREL [Suspect]
     Indication: PSORIATIC ARTHROPATHY
     Dosage: 50 MG, QWK
     Route: 058
  2. GABAPENTIN [Concomitant]
     Dosage: 100 MG, UNK
  3. PRECOSE [Concomitant]
     Dosage: 25 MG, UNK
  4. METFORMIN [Concomitant]
     Dosage: 1000 MG, UNK
  5. PROZAC [Concomitant]
     Dosage: 20 MG, UNK
  6. PREMARIN [Concomitant]
     Dosage: 0.3 MG, UNK
  7. VITAMIN B12                        /00056201/ [Concomitant]
     Dosage: 1000, UNK, UNK
  8. IRON PLUS                          /00292601/ [Concomitant]
     Dosage: 100 UNK, UNK
  9. MULTIVITAMINS, PLAIN [Concomitant]
     Dosage: UNK
  10. IPRATROPIUM [Concomitant]
     Dosage: UNK
  11. ZYRTEC ALLERGY [Concomitant]
     Dosage: 10 MG, UNK
  12. CALCIUM [Concomitant]
     Dosage: 1200 CHEWABLE, UNK,

REACTIONS (12)
  - Pharyngitis streptococcal [Unknown]
  - Sinusitis [Unknown]
  - Fungal infection [Unknown]
  - Nausea [Not Recovered/Not Resolved]
  - Vomiting [Not Recovered/Not Resolved]
  - Pyrexia [Not Recovered/Not Resolved]
  - Pain [Not Recovered/Not Resolved]
  - Chills [Not Recovered/Not Resolved]
  - Impaired healing [Not Recovered/Not Resolved]
  - Tooth fracture [Not Recovered/Not Resolved]
  - Dyspnoea [Unknown]
  - Influenza like illness [Unknown]
